FAERS Safety Report 4831862-1 (Version None)
Quarter: 2005Q4

REPORT INFORMATION
  Report Type: 
  Country: None (occurrence: None)
  Receive Date: 20051116
  Receipt Date: 20051102
  Transmission Date: 20060501
  Serious: Yes (Death)
  Sender: FDA-Public Use
  Company Number: 8010684

PATIENT
  Age: 43 Year
  Sex: Female
  Weight: 76 kg

DRUGS (4)
  1. KEPPRA [Suspect]
     Indication: EPILEPSY
     Dosage: 2500 MG/D PO
     Route: 048
     Dates: start: 20040111
  2. TEGRETOL [Concomitant]
  3. LAMOTRIGINE [Concomitant]
  4. CLONAZEPAM [Concomitant]

REACTIONS (10)
  - BRONCHOPNEUMONIA [None]
  - INCREASED BRONCHIAL SECRETION [None]
  - INFLAMMATION [None]
  - LUNG DISORDER [None]
  - PULMONARY CONGESTION [None]
  - PULMONARY OEDEMA [None]
  - PURULENT DISCHARGE [None]
  - SPLEEN CONGESTION [None]
  - SUDDEN DEATH [None]
  - UTERINE LEIOMYOMA [None]
